FAERS Safety Report 16386152 (Version 1)
Quarter: 2019Q2

REPORT INFORMATION
  Report Type: Spontaneous
  Country: US (occurrence: US)
  Receive Date: 20190603
  Receipt Date: 20190603
  Transmission Date: 20190711
  Serious: No
  Sender: FDA-Public Use
  Company Number: US-ARBOR PHARMACEUTICALS, LLC-US-2019ARB000299

PATIENT
  Age: 73 Year
  Sex: Female

DRUGS (4)
  1. HORIZANT [Suspect]
     Active Substance: GABAPENTIN ENACARBIL
     Dosage: 600 MG, QD
     Route: 048
     Dates: start: 20190207
  2. HORIZANT [Suspect]
     Active Substance: GABAPENTIN ENACARBIL
     Dosage: 600 MG, QD
     Route: 048
     Dates: start: 20190203, end: 20190206
  3. HORIZANT [Suspect]
     Active Substance: GABAPENTIN ENACARBIL
     Indication: RESTLESS LEGS SYNDROME
     Dosage: 600 MG, QD
     Route: 048
     Dates: start: 20190123, end: 20190126
  4. HORIZANT [Suspect]
     Active Substance: GABAPENTIN ENACARBIL
     Dosage: 600 MG, QD
     Route: 048
     Dates: start: 20190127, end: 20190202

REACTIONS (1)
  - Drug ineffective [Unknown]

NARRATIVE: CASE EVENT DATE: 20190123
